FAERS Safety Report 7368480-X (Version None)
Quarter: 2011Q1

REPORT INFORMATION
  Report Type: 
  Country: None (occurrence: None)
  Receive Date: 20110317
  Receipt Date: 20110317
  Transmission Date: 20110831
  Serious: Yes (Hospitalization)
  Sender: FDA-Public Use
  Company Number: None

PATIENT
  Age: 66 Year
  Sex: Male
  Weight: 93 kg

DRUGS (2)
  1. MOXIFLOXACIN [Suspect]
     Indication: PNEUMONIA
     Dosage: 400 MG EVERY DAY IV
     Route: 042
     Dates: start: 20110201, end: 20110206
  2. PIPERACILLIN AND TAZOBACTAM [Suspect]
     Indication: PNEUMONIA
     Dosage: 4.5 GM QID IV
     Route: 042
     Dates: start: 20110206, end: 20110209

REACTIONS (2)
  - DIARRHOEA [None]
  - CLOSTRIDIUM TEST POSITIVE [None]
